FAERS Safety Report 11055431 (Version 1)
Quarter: 2015Q2

REPORT INFORMATION
  Report Type: Spontaneous
  Country: US (occurrence: None)
  Receive Date: 20150421
  Receipt Date: 20150421
  Transmission Date: 20150821
  Serious: Yes (Other)
  Sender: FDA-Public Use
  Company Number: None

PATIENT

DRUGS (1)
  1. AMPHETAMINE SALTS [Suspect]
     Active Substance: AMPHETAMINE ASPARTATE\AMPHETAMINE SULFATE\DEXTROAMPHETAMINE SACCHARATE\DEXTROAMPHETAMINE SULFATE
     Dosage: 1 PILL TWICE DAILY TAKEN BY MOUTH
     Route: 048

REACTIONS (10)
  - Gastrooesophageal reflux disease [None]
  - Drug ineffective [None]
  - Feeling abnormal [None]
  - Malaise [None]
  - Somnolence [None]
  - Product quality issue [None]
  - Quality of life decreased [None]
  - Condition aggravated [None]
  - Abdominal pain upper [None]
  - Product substitution issue [None]
